FAERS Safety Report 17878280 (Version 1)
Quarter: 2020Q2

REPORT INFORMATION
  Report Type: Spontaneous
  Country: JP (occurrence: JP)
  Receive Date: 20200610
  Receipt Date: 20200610
  Transmission Date: 20200714
  Serious: Yes (Other)
  Sender: FDA-Public Use
  Company Number: JP-SUN PHARMACEUTICAL INDUSTRIES LTD-2020RR-249754

PATIENT
  Age: 67 Year
  Sex: Male

DRUGS (3)
  1. OXALIPLATIN. [Suspect]
     Active Substance: OXALIPLATIN
     Indication: ADENOCARCINOMA OF COLON
     Dosage: 11 COURSES
     Route: 065
     Dates: start: 201803, end: 201811
  2. CAPECITABINE. [Suspect]
     Active Substance: CAPECITABINE
     Indication: ADENOCARCINOMA OF COLON
     Dosage: 11 COURSES
     Route: 065
     Dates: start: 201803, end: 201811
  3. BEVACIZUMAB. [Suspect]
     Active Substance: BEVACIZUMAB
     Indication: ADENOCARCINOMA OF COLON
     Dosage: 11 COURSES
     Route: 065
     Dates: start: 201803, end: 201811

REACTIONS (5)
  - Varices oesophageal [Unknown]
  - Ascites [Unknown]
  - Hepatic failure [Recovered/Resolved]
  - Shock haemorrhagic [Unknown]
  - Disease recurrence [Unknown]
